FAERS Safety Report 9725494 (Version 1)
Quarter: 2013Q4

REPORT INFORMATION
  Report Type: Spontaneous
  Country: US (occurrence: None)
  Receive Date: 20131202
  Receipt Date: 20131202
  Transmission Date: 20140711
  Serious: Yes (Other)
  Sender: FDA-Public Use
  Company Number: None

PATIENT
  Age: 54 Year
  Sex: Male
  Weight: 77.11 kg

DRUGS (2)
  1. CIPROFLOXACIN [Suspect]
     Indication: PAIN
     Dosage: 1 PILL, ONCE DAILY, TAKEN BY MOUTH
     Dates: start: 20131120, end: 20131127
  2. CIPROFLOXACIN [Suspect]
     Indication: HEADACHE
     Dosage: 1 PILL, ONCE DAILY, TAKEN BY MOUTH
     Dates: start: 20131120, end: 20131127

REACTIONS (3)
  - Dizziness [None]
  - Vision blurred [None]
  - Blindness [None]
